FAERS Safety Report 13192812 (Version 3)
Quarter: 2017Q1

REPORT INFORMATION
  Report Type: Spontaneous
  Country: SI (occurrence: SI)
  Receive Date: 20170207
  Receipt Date: 20170308
  Transmission Date: 20170428
  Serious: Yes (Other)
  Sender: FDA-Public Use
  Company Number: SI-REGENERON PHARMACEUTICALS, INC.-2017-11513

PATIENT

DRUGS (20)
  1. EYLEA [Suspect]
     Active Substance: AFLIBERCEPT
     Dosage: 7TH APPLICATION - LEFT EYE
     Route: 031
     Dates: start: 20160222, end: 20160222
  2. EYLEA [Suspect]
     Active Substance: AFLIBERCEPT
     Dosage: 11TH APPLICATION - LEFT EYE
     Route: 031
     Dates: start: 20160811, end: 20160811
  3. EYLEA [Suspect]
     Active Substance: AFLIBERCEPT
     Dosage: 2ND APPLICATION - LEFT EYE
     Route: 031
     Dates: start: 20150713, end: 20150713
  4. EYLEA [Suspect]
     Active Substance: AFLIBERCEPT
     Dosage: 1ST APPLICATION RIGHT EYE
     Route: 031
     Dates: start: 20151012, end: 20151012
  5. ASPIRIN PROTECT [Suspect]
     Active Substance: ASPIRIN
     Indication: ATRIAL FIBRILLATION
     Dosage: UNK
     Dates: start: 201509, end: 201601
  6. APIXABAN [Concomitant]
     Active Substance: APIXABAN
     Indication: PRODUCT USED FOR UNKNOWN INDICATION
  7. EYLEA [Suspect]
     Active Substance: AFLIBERCEPT
     Indication: AGE-RELATED MACULAR DEGENERATION
     Dosage: 1ST APPLICATION - LEFT EYE
     Route: 031
     Dates: start: 20150604, end: 20150604
  8. EYLEA [Suspect]
     Active Substance: AFLIBERCEPT
     Dosage: 14TH APPLICATION - LEFT EYE
     Route: 031
     Dates: start: 20161215, end: 20161215
  9. EYLEA [Suspect]
     Active Substance: AFLIBERCEPT
     Dosage: 2ND APPLICATION - RIGHT EYE
     Route: 031
     Dates: start: 20151116, end: 20151116
  10. EYLEA [Suspect]
     Active Substance: AFLIBERCEPT
     Dosage: 8TH APPLICATION - LEFT EYE
     Route: 031
     Dates: start: 20160415, end: 20160415
  11. EYLEA [Suspect]
     Active Substance: AFLIBERCEPT
     Dosage: 13TH APPLICATION - LEFT EYE
     Route: 031
     Dates: start: 20161115, end: 20161115
  12. EYLEA [Suspect]
     Active Substance: AFLIBERCEPT
     Dosage: 3RD APPLICATION - LEFT EYE
     Route: 031
     Dates: start: 20150907, end: 20150907
  13. EYLEA [Suspect]
     Active Substance: AFLIBERCEPT
     Dosage: 6TH APPLICATION - LEFT EYE
     Route: 031
     Dates: start: 20160104, end: 20160104
  14. EYLEA [Suspect]
     Active Substance: AFLIBERCEPT
     Dosage: 9TH APPLICATION - LEFT EYE
     Route: 031
     Dates: start: 20160515, end: 20160515
  15. EYLEA [Suspect]
     Active Substance: AFLIBERCEPT
     Dosage: 10TH APPLICATION - LEFT EYE
     Route: 031
     Dates: start: 20160623, end: 20160623
  16. EYLEA [Suspect]
     Active Substance: AFLIBERCEPT
     Dosage: 12TH APPLICATION - LEFT EYE
     Route: 031
     Dates: start: 20161006, end: 20161006
  17. LUCENTIS [Concomitant]
     Active Substance: RANIBIZUMAB
     Indication: PRODUCT USED FOR UNKNOWN INDICATION
     Dosage: FIRST APPLICATION INTO RIGHT EYE
     Dates: start: 20150916, end: 20150916
  18. EYLEA [Suspect]
     Active Substance: AFLIBERCEPT
     Dosage: 4TH APPLICATION - LEFT EYE
     Route: 031
     Dates: start: 20151005, end: 20151005
  19. EYLEA [Suspect]
     Active Substance: AFLIBERCEPT
     Dosage: 5TH APPLICATION - LEFT EYE
     Route: 031
     Dates: start: 20151102, end: 20151102
  20. EYLEA [Suspect]
     Active Substance: AFLIBERCEPT
     Dosage: 3RD APPLICATION - RIGHT EYE
     Route: 031

REACTIONS (20)
  - Visual impairment [Unknown]
  - Visual impairment [Unknown]
  - Retinal haemorrhage [Unknown]
  - Visual impairment [Unknown]
  - Visual impairment [Unknown]
  - Retinal haemorrhage [Recovering/Resolving]
  - Visual impairment [Unknown]
  - Retinal haemorrhage [Unknown]
  - Retinal haemorrhage [Unknown]
  - Visual impairment [Unknown]
  - Visual impairment [Unknown]
  - Vitreous opacities [Unknown]
  - Visual impairment [Unknown]
  - Visual impairment [Unknown]
  - Retinal scar [Unknown]
  - Retinal thickening [Unknown]
  - Retinal detachment [Unknown]
  - Vitreous detachment [Unknown]
  - Vitreous haematoma [Not Recovered/Not Resolved]
  - Visual impairment [Unknown]

NARRATIVE: CASE EVENT DATE: 20150907
